FAERS Safety Report 7126816-9 (Version None)
Quarter: 2010Q4

REPORT INFORMATION
  Report Type: 
  Country: None (occurrence: None)
  Receive Date: 20101129
  Receipt Date: 20091028
  Transmission Date: 20110411
  Serious: No
  Sender: FDA-Public Use
  Company Number: US-PFIZER INC-2009290632

PATIENT
  Sex: Male
  Weight: 95.2 kg

DRUGS (4)
  1. VIAGRA [Suspect]
     Indication: ERECTILE DYSFUNCTION
     Dosage: 50 MG, UNK
     Dates: start: 20091001
  2. KLOR-CON [Concomitant]
     Dosage: UNK
  3. LASIX [Concomitant]
     Dosage: UNK
  4. WARFARIN [Concomitant]
     Dosage: UNK

REACTIONS (1)
  - DRUG EFFECT DECREASED [None]
